FAERS Safety Report 8649360 (Version 2)
Quarter: 2012Q4

REPORT INFORMATION
  Report Type: 
  Country: JP (occurrence: JP)
  Receive Date: 20120705
  Receipt Date: 20121004
  Transmission Date: 20130627
  Serious: No
  Sender: FDA-Public Use
  Company Number: JP-JNJFOC-20120611679

PATIENT
  Age: 8 None
  Sex: Female

DRUGS (2)
  1. DUROTEP MT [Suspect]
     Indication: PAIN
     Route: 062
     Dates: start: 201203
  2. UNSPECIFIED INGREDIENT [Suspect]
     Indication: GASTRIC CANCER
     Route: 048

REACTIONS (2)
  - Wrong technique in drug usage process [Unknown]
  - Hypoaesthesia [Recovered/Resolved]
